FAERS Safety Report 13013095 (Version 1)
Quarter: 2016Q4

REPORT INFORMATION
  Report Type: Spontaneous
  Country: US (occurrence: US)
  Receive Date: 20161208
  Receipt Date: 20161208
  Transmission Date: 20170207
  Serious: Yes (Disabling, Other)
  Sender: FDA-Public Use
  Company Number: None

PATIENT
  Age: 62 Year
  Sex: Female
  Weight: 66.6 kg

DRUGS (19)
  1. PROAIR HFA [Suspect]
     Active Substance: ALBUTEROL SULFATE
     Indication: ASTHMA
     Dosage: ?          QUANTITY:200 INHALATION(S);?
     Route: 055
     Dates: start: 20161115
  2. PORTABLE CONCENTRATOR [Concomitant]
  3. VITAMIN D [Concomitant]
     Active Substance: CHOLECALCIFEROL
  4. PROAIR HFA [Concomitant]
     Active Substance: ALBUTEROL SULFATE
  5. LEVOTHYROXINE. [Concomitant]
     Active Substance: LEVOTHYROXINE
  6. BREO ELLIPTA [Concomitant]
     Active Substance: FLUTICASONE FUROATE\VILANTEROL TRIFENATATE
  7. OXYGEN. [Concomitant]
     Active Substance: OXYGEN
  8. 21 VIA CONCENTRATOR [Concomitant]
  9. NITROSTAT [Concomitant]
     Active Substance: NITROGLYCERIN
  10. VENLAFAXINE [Concomitant]
     Active Substance: VENLAFAXINE HYDROCHLORIDE
  11. PANTOPRAZOLE [Concomitant]
     Active Substance: PANTOPRAZOLE SODIUM
  12. AMBIEN [Concomitant]
     Active Substance: ZOLPIDEM TARTRATE
  13. NEBULIZER [Concomitant]
     Active Substance: DEVICE
  14. IMDUR [Concomitant]
     Active Substance: ISOSORBIDE MONONITRATE
  15. ATIVAN [Concomitant]
     Active Substance: LORAZEPAM
  16. ATENOLOL. [Concomitant]
     Active Substance: ATENOLOL
  17. ATORVASTATIN [Concomitant]
     Active Substance: ATORVASTATIN
  18. FOLBIC [Concomitant]
     Active Substance: CYANOCOBALAMIN\FOLIC ACID\PYRIDOXINE
  19. SPIRIVA [Concomitant]
     Active Substance: TIOTROPIUM BROMIDE MONOHYDRATE

REACTIONS (6)
  - Anxiety [None]
  - Device malfunction [None]
  - Drug ineffective [None]
  - Discomfort [None]
  - Device occlusion [None]
  - Dyspnoea [None]

NARRATIVE: CASE EVENT DATE: 20161208
